FAERS Safety Report 11924795 (Version 1)
Quarter: 2016Q1

REPORT INFORMATION
  Report Type: Spontaneous
  Country: GB (occurrence: GB)
  Receive Date: 20160118
  Receipt Date: 20160118
  Transmission Date: 20160526
  Serious: Yes (Other)
  Sender: FDA-Public Use
  Company Number: US-BRAINTREE LABORATORIES-160029

PATIENT
  Age: 80 Year
  Sex: Female

DRUGS (1)
  1. IZINOVA [Suspect]
     Active Substance: MAGNESIUM SULFATE\POTASSIUM SULFATE\SODIUM SULFATE
     Dosage: 2 X 6 OZ. BOTTLE
     Route: 065

REACTIONS (2)
  - Vomiting [None]
  - Mallory-Weiss syndrome [None]
